FAERS Safety Report 11410811 (Version 1)
Quarter: 2015Q3

REPORT INFORMATION
  Report Type: Spontaneous
  Country: US (occurrence: US)
  Receive Date: 20150821
  Receipt Date: 20150821
  Transmission Date: 20151125
  Serious: No
  Sender: FDA-Public Use
  Company Number: US-ELI_LILLY_AND_COMPANY-US200910001710

PATIENT
  Sex: Female

DRUGS (3)
  1. HUMULIN N [Suspect]
     Active Substance: INSULIN HUMAN
     Dosage: UNK, UNK
  2. NOVOLOG [Concomitant]
     Active Substance: INSULIN ASPART
  3. HUMULIN N [Suspect]
     Active Substance: INSULIN HUMAN

REACTIONS (3)
  - Blood glucose decreased [Recovered/Resolved]
  - Blood glucose increased [Recovered/Resolved]
  - Injection site discomfort [Recovered/Resolved]

NARRATIVE: CASE EVENT DATE: 2009
